FAERS Safety Report 5749902-4 (Version None)
Quarter: 2008Q2

REPORT INFORMATION
  Report Type: 
  Country: None (occurrence: None)
  Receive Date: 20080527
  Receipt Date: 20080519
  Transmission Date: 20081010
  Serious: Yes (Other)
  Sender: FDA-Public Use
  Company Number: US-ELI_LILLY_AND_COMPANY-US200803004473

PATIENT
  Sex: Male
  Weight: 73.016 kg

DRUGS (13)
  1. BYETTA [Suspect]
     Indication: TYPE 2 DIABETES MELLITUS
     Dosage: 5 UG, 2/D
     Route: 058
     Dates: start: 20060101, end: 20060101
  2. BYETTA [Suspect]
     Dosage: 10 UG, 2/D
     Route: 058
     Dates: start: 20060101, end: 20061201
  3. LOFIBRA [Concomitant]
  4. LIPITOR [Concomitant]
     Dosage: 40 MG, DAILY (1/D)
  5. TRAZODONE HCL [Concomitant]
     Dosage: 100 MG, EACH EVENING
     Route: 048
  6. ACTOS [Concomitant]
     Indication: DIABETES MELLITUS
  7. ASPIRIN [Concomitant]
     Dosage: 325 MG, DAILY (1/D)
     Route: 048
  8. CITALOPRAMI HYDROBROMIDUM [Concomitant]
     Dosage: 40 MG, DAILY (1/D)
     Route: 048
  9. CLONAZEPAM [Concomitant]
     Indication: DIZZINESS
     Dosage: 1 MG, 2/D
     Route: 048
  10. COLACE [Concomitant]
     Dosage: 100 MG, 3/D
     Route: 048
  11. DIHYDROERGOTAMINE [Concomitant]
     Dosage: 1 MG, UNKNOWN
     Route: 030
  12. DILAUDID [Concomitant]
     Dosage: 4 MG, AS NEEDED
     Route: 048
  13. DURAGESIC-100 [Concomitant]
     Dosage: UNK, OTHER
     Route: 065

REACTIONS (2)
  - PANCREATITIS [None]
  - WEIGHT DECREASED [None]
